FAERS Safety Report 11796243 (Version 1)
Quarter: 2015Q4

REPORT INFORMATION
  Report Type: Spontaneous
  Country: DE (occurrence: DE)
  Receive Date: 20151203
  Receipt Date: 20151203
  Transmission Date: 20160305
  Serious: Yes (Other)
  Sender: FDA-Public Use
  Company Number: DE-ACTAVIS-2015-26192

PATIENT
  Age: 29 Year
  Sex: Female
  Weight: 55 kg

DRUGS (6)
  1. CELESTAN                           /00008501/ [Concomitant]
     Indication: MATERNAL THERAPY TO ENHANCE FOETAL LUNG MATURITY
     Dosage: 12 MG, DAILY
     Route: 030
     Dates: start: 20150329, end: 20150330
  2. FEMIBION                           /01597501/ [Concomitant]
     Active Substance: CALCIUM PHOSPHATE, DIBASIC, ANHYDROUS\FERROUS SUCCINATE\MAGNESIUM HYDROXIDE
     Indication: PROPHYLAXIS OF NEURAL TUBE DEFECT
     Dosage: UNK, UNKNOWN
     Route: 048
     Dates: start: 20150128, end: 20150128
  3. CEFUROXIME. [Concomitant]
     Active Substance: CEFUROXIME
     Indication: PRODUCT USED FOR UNKNOWN INDICATION
     Dosage: 4.5 MG, SINGLE
     Route: 042
     Dates: start: 20150329, end: 20150401
  4. QUETIAPINE (UNKNOWN) [Suspect]
     Active Substance: QUETIAPINE
     Indication: BIPOLAR DISORDER
     Dosage: 300 MG, DAILY
     Route: 048
     Dates: start: 20140812, end: 20150401
  5. LITHIUM CITRATE (UNKNOWN) [Suspect]
     Active Substance: LITHIUM CITRATE
     Indication: BIPOLAR DISORDER
     Dosage: SINCE 2007, UNKNOWN
     Route: 048
     Dates: start: 20140812, end: 20150401
  6. CEFUROXIME. [Concomitant]
     Active Substance: CEFUROXIME
     Dosage: 1500 MG, TID
     Route: 042
     Dates: start: 20150329, end: 20150401

REACTIONS (2)
  - Hypothyroidism [Unknown]
  - Gestational diabetes [Recovered/Resolved]
